FAERS Safety Report 6343832-5 (Version None)
Quarter: 2009Q3

REPORT INFORMATION
  Report Type: 
  Country: None (occurrence: None)
  Receive Date: 20090908
  Receipt Date: 20090828
  Transmission Date: 20100115
  Serious: Yes (Other)
  Sender: FDA-Public Use
  Company Number: PHEH2009US10084

PATIENT

DRUGS (2)
  1. GLEEVEC [Suspect]
  2. RADIATION [Suspect]

REACTIONS (1)
  - OSTEONECROSIS [None]
